FAERS Safety Report 16985419 (Version 4)
Quarter: 2021Q1

REPORT INFORMATION
  Report Type: Report from Study
  Country: US (occurrence: US)
  Receive Date: 20191101
  Receipt Date: 20210129
  Transmission Date: 20210419
  Serious: Yes (Hospitalization, Disabling, Other)
  Sender: FDA-Public Use
  Company Number: US-SA-2017SA106775

PATIENT
  Age: 42 Year
  Sex: Female

DRUGS (3)
  1. ALEMTUZUMAB [Suspect]
     Active Substance: ALEMTUZUMAB
     Dosage: 12 MG,QD
     Route: 041
     Dates: start: 20160307, end: 20160308
  2. ALEMTUZUMAB [Suspect]
     Active Substance: ALEMTUZUMAB
     Indication: MULTIPLE SCLEROSIS
     Dosage: 12 MG,QD
     Route: 041
     Dates: start: 20170306, end: 20170308
  3. ALEMTUZUMAB [Suspect]
     Active Substance: ALEMTUZUMAB
     Dosage: 12 MG,QD
     Route: 041
     Dates: start: 20160302, end: 20160304

REACTIONS (9)
  - Platelet count decreased [Unknown]
  - Herpes zoster [Not Recovered/Not Resolved]
  - Autoimmune thyroiditis [Unknown]
  - Urticaria [Not Recovered/Not Resolved]
  - Drug monitoring procedure not performed [Unknown]
  - Cerebral disorder [Not Recovered/Not Resolved]
  - Immune thrombocytopenia [Unknown]
  - Wheelchair user [Unknown]
  - Unevaluable event [Recovered/Resolved]

NARRATIVE: CASE EVENT DATE: 2017
